FAERS Safety Report 8789358 (Version 1)
Quarter: 2012Q4

REPORT INFORMATION
  Report Type: Spontaneous
  Country: GB (occurrence: None)
  Receive Date: 20120905
  Receipt Date: 20120905
  Transmission Date: 20130627
  Serious: Yes (Other)
  Sender: FDA-Public Use
  Company Number: GER/UKI/12/0025657

PATIENT
  Age: 28 Year
  Sex: Female

DRUGS (2)
  1. RISPERIDONE [Suspect]
     Indication: PARANOID SCHIZOPHRENIA
     Route: 048
     Dates: start: 2007
  2. DEPIXOL [Suspect]
     Indication: DRUG USE FOR UNKNOWN INDICATION
     Dates: start: 2009

REACTIONS (10)
  - Aggression [None]
  - Akathisia [None]
  - Abnormal behaviour [None]
  - Impaired self-care [None]
  - Social avoidant behaviour [None]
  - Speech disorder [None]
  - Aphasia [None]
  - Tardive dyskinesia [None]
  - Irritability [None]
  - Refusal of treatment by patient [None]
